FAERS Safety Report 11255456 (Version 1)
Quarter: 2015Q3

REPORT INFORMATION
  Report Type: Spontaneous
  Country: US (occurrence: US)
  Receive Date: 20150709
  Receipt Date: 20150709
  Transmission Date: 20151125
  Serious: No
  Sender: FDA-Public Use
  Company Number: US-SA-2015SA083780

PATIENT
  Age: 50 Year
  Sex: Female

DRUGS (1)
  1. AFREZZA [Suspect]
     Active Substance: INSULIN HUMAN
     Dosage: DOSE: 8-12 U
     Route: 065
     Dates: start: 20150327

REACTIONS (1)
  - Tachycardia [Unknown]
